FAERS Safety Report 15917184 (Version 1)
Quarter: 2019Q1

REPORT INFORMATION
  Report Type: Spontaneous
  Country: DE (occurrence: DE)
  Receive Date: 20190205
  Receipt Date: 20190205
  Transmission Date: 20190417
  Serious: Yes (Hospitalization)
  Sender: FDA-Public Use
  Company Number: DE-ACCORD-105290

PATIENT
  Age: 57 Year
  Sex: Female
  Weight: 50 kg

DRUGS (8)
  1. OXALIPLATIN. [Suspect]
     Active Substance: OXALIPLATIN
     Indication: PRODUCT USED FOR UNKNOWN INDICATION
     Dosage: 85 MG / M2, SCHEME, INJECTION / INFUSION SOLUTION
     Route: 042
  2. FLUOROURACIL. [Suspect]
     Active Substance: FLUOROURACIL
     Indication: PRODUCT USED FOR UNKNOWN INDICATION
     Dosage: 2400 MG / M2, SCHEME, INJECTION / INFUSION SOLUTION
     Route: 042
  3. LOPERAMIDE [Concomitant]
     Active Substance: LOPERAMIDE
     Dosage: BEDARF, TABLETTEN
     Route: 048
  4. FILGRASTIM HEXAL [Concomitant]
     Active Substance: FILGRASTIM
     Dosage: 0.5 ML, SCHEMA, INJECTION / INFUSION SOLUTION
     Route: 058
  5. DEXAMETHASONE. [Concomitant]
     Active Substance: DEXAMETHASONE
     Dosage: 4 MG, SCHEME, TABLETS
     Route: 048
  6. FOLINSAEURE [Suspect]
     Active Substance: LEUCOVORIN CALCIUM
     Indication: PRODUCT USED FOR UNKNOWN INDICATION
     Dosage: 400 MG / M2, SCHEME, INJECTION / INFUSION SOLUTION
     Route: 042
  7. FLUOROURACIL. [Suspect]
     Active Substance: FLUOROURACIL
     Indication: PRODUCT USED FOR UNKNOWN INDICATION
     Dosage: 400 MG / M2, SCHEME, INJECTION / INFUSION SOLUTION
     Route: 013
  8. MCP AL [Concomitant]
     Dosage: AS NEEDED, TABLETS
     Route: 048

REACTIONS (11)
  - Nausea [Unknown]
  - Oral discomfort [Unknown]
  - General physical health deterioration [Unknown]
  - Cough [Unknown]
  - Vomiting [Unknown]
  - Pyrexia [Unknown]
  - Oral pain [Unknown]
  - Abdominal pain upper [Unknown]
  - Dizziness [Unknown]
  - Diarrhoea [Unknown]
  - Epistaxis [Unknown]
